FAERS Safety Report 4734086-1 (Version None)
Quarter: 2005Q3

REPORT INFORMATION
  Report Type: 
  Country: None (occurrence: None)
  Receive Date: 20050803
  Receipt Date: 20050803
  Transmission Date: 20060218
  Serious: Yes (Death)
  Sender: FDA-Public Use
  Company Number: None

PATIENT
  Age: 73 Year
  Sex: Male
  Weight: 80.7403 kg

DRUGS (2)
  1. ONDANSETRON [Suspect]
     Dosage: 32MG ONCE INTRAVENOUS
     Route: 042
     Dates: start: 20050407, end: 20050407
  2. DIPHENHYDRAMINE [Suspect]
     Dosage: 50 ONCE INTRAVENOUS
     Route: 042
     Dates: start: 20050407, end: 20050407

REACTIONS (6)
  - CARDIO-RESPIRATORY ARREST [None]
  - COUGH [None]
  - DYSPNOEA [None]
  - INFUSION RELATED REACTION [None]
  - OXYGEN SATURATION DECREASED [None]
  - TREMOR [None]
